FAERS Safety Report 10081489 (Version 1)
Quarter: 2014Q2

REPORT INFORMATION
  Report Type: Spontaneous
  Country: US (occurrence: US)
  Receive Date: 20140416
  Receipt Date: 20140416
  Transmission Date: 20141212
  Serious: Yes (Other)
  Sender: FDA-Public Use
  Company Number: US-PFIZER INC-2014105726

PATIENT
  Age: 74 Year
  Sex: Male
  Weight: 76.19 kg

DRUGS (1)
  1. CELEBREX [Suspect]
     Indication: ARTHRITIS
     Dosage: 100 MG, 1X/DAY
     Route: 048
     Dates: start: 20140412, end: 20140413

REACTIONS (7)
  - Drug hypersensitivity [Recovered/Resolved]
  - Pharyngeal oedema [Recovered/Resolved]
  - Dyspnoea [Recovered/Resolved]
  - Erythema [Recovered/Resolved]
  - Rash [Recovered/Resolved]
  - Eye swelling [Recovered/Resolved]
  - Feeling hot [Recovered/Resolved]
